FAERS Safety Report 9338169 (Version 2)
Quarter: 2013Q2

REPORT INFORMATION
  Report Type: Spontaneous
  Country: CA (occurrence: CA)
  Receive Date: 20130610
  Receipt Date: 20130624
  Transmission Date: 20140414
  Serious: Yes (Other)
  Sender: FDA-Public Use
  Company Number: CA-ROCHE-1234605

PATIENT
  Age: 61 Year
  Sex: Female

DRUGS (1)
  1. XOLAIR [Suspect]
     Indication: ASTHMA
     Route: 058
     Dates: start: 20120926

REACTIONS (2)
  - Sinusitis [Recovering/Resolving]
  - Herpes zoster [Recovering/Resolving]
